FAERS Safety Report 8850686 (Version 1)
Quarter: 2012Q4

REPORT INFORMATION
  Report Type: 
  Country: CH (occurrence: CH)
  Receive Date: 20121019
  Receipt Date: 20121019
  Transmission Date: 20130627
  Serious: Yes (Hospitalization, Other)
  Sender: FDA-Public Use
  Company Number: CH-JNJFOC-20121005776

PATIENT
  Age: 35 Year
  Sex: Male
  Weight: 120 kg

DRUGS (3)
  1. RISPERDAL CONSTA [Suspect]
     Indication: SCHIZOPHRENIA, PARANOID TYPE
     Dosage: intragluteal injection
     Route: 030
     Dates: start: 201110, end: 201204
  2. DAIVOBET [Concomitant]
     Indication: PSORIASIS
     Route: 003
  3. KETONAZOL [Concomitant]
     Indication: PSORIASIS
     Route: 065

REACTIONS (5)
  - Furuncle [Recovering/Resolving]
  - Vesical fistula [Recovering/Resolving]
  - Acne cystic [Recovering/Resolving]
  - Acne pustular [Recovering/Resolving]
  - Subcutaneous abscess [Recovering/Resolving]
